FAERS Safety Report 8322448 (Version 4)
Quarter: 2012Q4

REPORT INFORMATION
  Report Type: 
  Country: GB (occurrence: GB)
  Receive Date: 20120105
  Receipt Date: 20121001
  Transmission Date: 20130627
  Serious: Yes (Death)
  Sender: FDA-Public Use
  Company Number: PHFR2012GB000447

PATIENT
  Sex: Male

DRUGS (13)
  1. CLOZARIL [Suspect]
     Indication: SCHIZOPHRENIA
     Route: 048
     Dates: start: 20090326
  2. METFORMIN HYDROCHLORIDE [Concomitant]
     Route: 048
  3. RAMIPRIL [Concomitant]
     Dosage: 10 mg, daily
     Route: 048
  4. ALENDRONIC ACID [Concomitant]
     Dosage: 70 mg, weekly
     Route: 048
  5. FERROUS SULPHATE [Concomitant]
     Dosage: 200 mg, BID
     Route: 048
  6. CALCICHEW D3 FORT [Concomitant]
     Route: 048
  7. CO-CODAMOL [Concomitant]
     Route: 048
  8. CLOPIDOGREL [Concomitant]
     Dosage: 75 mg, to be taken each morning
     Route: 048
  9. ASPIRIN [Concomitant]
     Dosage: 1 DF, QD
     Route: 048
  10. SIMVASTATIN [Concomitant]
     Dosage: 40 mg, QD to be taken at night
     Route: 048
  11. NICORANDIL [Concomitant]
     Dosage: 10 mg, BID
     Route: 048
  12. SULFASALAZINE [Concomitant]
     Dosage: 500 mg, BID
     Route: 048
  13. GELTEARS [Concomitant]
     Dosage: 0.2 %, As per advice

REACTIONS (2)
  - Myocardial ischaemia [Fatal]
  - Toxicity to various agents [Fatal]
